FAERS Safety Report 21771720 (Version 1)
Quarter: 2022Q4

REPORT INFORMATION
  Report Type: Spontaneous
  Country: US (occurrence: US)
  Receive Date: 20221223
  Receipt Date: 20221223
  Transmission Date: 20230113
  Serious: Yes (Other)
  Sender: FDA-Public Use
  Company Number: US-BAYER-2022P029814

PATIENT
  Age: 91 Year
  Sex: Female

DRUGS (12)
  1. ADEMPAS [Suspect]
     Active Substance: RIOCIGUAT
     Indication: Pulmonary hypertension
     Dosage: 1 MG, TID
     Route: 048
     Dates: start: 20220919, end: 20221115
  2. AMBRISENTAN [Suspect]
     Active Substance: AMBRISENTAN
     Indication: Pulmonary hypertension
  3. TORSEMIDE [Concomitant]
     Active Substance: TORSEMIDE
  4. APIXABAN [Concomitant]
     Active Substance: APIXABAN
  5. AZATHIOPRINE [Concomitant]
     Active Substance: AZATHIOPRINE
  6. MESALAMINE [Concomitant]
     Active Substance: MESALAMINE
  7. ALBUTEROL SULFATE [Concomitant]
     Active Substance: ALBUTEROL SULFATE
     Dosage: UNK
     Route: 045
  8. HYDROXYUREA [Concomitant]
     Active Substance: HYDROXYUREA
  9. LOPERAMIDE [Concomitant]
     Active Substance: LOPERAMIDE
  10. SPIRIVA RESPIMAT [Concomitant]
     Active Substance: TIOTROPIUM BROMIDE
  11. LIDOCAINE [Concomitant]
     Active Substance: LIDOCAINE
  12. METHYL SALICYLATE [Concomitant]
     Active Substance: METHYL SALICYLATE

REACTIONS (2)
  - Fluid retention [None]
  - Drug intolerance [None]
